FAERS Safety Report 8025677-3 (Version None)
Quarter: 2012Q1

REPORT INFORMATION
  Report Type: 
  Country: None (occurrence: None)
  Receive Date: 20120105
  Receipt Date: 20111227
  Transmission Date: 20120608
  Serious: Yes (Hospitalization, Other)
  Sender: FDA-Public Use
  Company Number: US-ASTRAZENECA-2011SE52043

PATIENT
  Age: 71 Year
  Sex: Female
  Weight: 83.9 kg

DRUGS (5)
  1. PAIN MEDICATION [Concomitant]
     Indication: PAIN
  2. NEXIUM [Suspect]
     Indication: GASTROOESOPHAGEAL REFLUX DISEASE
     Route: 048
  3. MEDICINES FOR BLOOD PRESSURE [Concomitant]
     Indication: BLOOD PRESSURE ABNORMAL
  4. MEDICINES FOR ARTHRITIS [Concomitant]
     Indication: ARTHRITIS
  5. MEDICINES FOR HEART [Concomitant]
     Indication: CARDIAC DISORDER

REACTIONS (14)
  - ASTHMA [None]
  - ADVERSE EVENT [None]
  - HEPATOMEGALY [None]
  - INAPPROPRIATE SCHEDULE OF DRUG ADMINISTRATION [None]
  - BLINDNESS [None]
  - HEPATIC NEOPLASM [None]
  - DEAFNESS UNILATERAL [None]
  - CHRONIC OBSTRUCTIVE PULMONARY DISEASE [None]
  - DRUG DOSE OMISSION [None]
  - DIABETES MELLITUS [None]
  - VOCAL CORD DISORDER [None]
  - INTESTINAL OBSTRUCTION [None]
  - HEART VALVE STENOSIS [None]
  - DRUG PRESCRIBING ERROR [None]
